FAERS Safety Report 5367881-9 (Version None)
Quarter: 2007Q2

REPORT INFORMATION
  Report Type: 
  Country: None (occurrence: None)
  Receive Date: 20070622
  Receipt Date: 20070610
  Transmission Date: 20071010
  Serious: Yes (Hospitalization, Other)
  Sender: FDA-Public Use
  Company Number: US-PFIZER INC-2007025595

PATIENT
  Sex: Male
  Weight: 97.5 kg

DRUGS (3)
  1. GEODON [Suspect]
     Indication: BIPOLAR I DISORDER
     Route: 048
     Dates: start: 20070201, end: 20070328
  2. GEODON [Suspect]
     Indication: BIPOLAR II DISORDER
  3. XANAX [Concomitant]

REACTIONS (12)
  - ANXIETY [None]
  - ATRIAL FIBRILLATION [None]
  - BIPOLAR DISORDER [None]
  - CARDIAC ARREST [None]
  - CONCUSSION [None]
  - DILATATION ATRIAL [None]
  - HEART RATE IRREGULAR [None]
  - LOSS OF CONSCIOUSNESS [None]
  - MITRAL VALVE INCOMPETENCE [None]
  - NAUSEA [None]
  - SYNCOPE [None]
  - TRICUSPID VALVE INCOMPETENCE [None]
